FAERS Safety Report 5304023-X (Version None)
Quarter: 2007Q1

REPORT INFORMATION
  Report Type: 
  Country: None (occurrence: None)
  Receive Date: 20070201
  Receipt Date: 20061116
  Transmission Date: 20070707
  Serious: No
  Sender: FDA-Public Use
  Company Number: 2006PV025399

PATIENT
  Age: 82 Year
  Sex: Male
  Weight: 91.6266 kg

DRUGS (3)
  1. BYETTA [Suspect]
     Indication: DIABETES MELLITUS NON-INSULIN-DEPENDENT
     Dosage: 5 MCG;BID;SC
     Route: 058
     Dates: start: 20061110, end: 20061114
  2. NEXIUM [Concomitant]
  3. GLUCOPHAGE [Concomitant]

REACTIONS (9)
  - ABDOMINAL PAIN UPPER [None]
  - ABDOMINAL TENDERNESS [None]
  - BLOOD GLUCOSE INCREASED [None]
  - DIZZINESS [None]
  - FLATULENCE [None]
  - GAIT DISTURBANCE [None]
  - HEADACHE [None]
  - NAUSEA [None]
  - VERTIGO [None]
